FAERS Safety Report 6645829-4 (Version None)
Quarter: 2010Q1

REPORT INFORMATION
  Report Type: 
  Country: None (occurrence: None)
  Receive Date: 20100318
  Receipt Date: 20100318
  Transmission Date: 20100710
  Serious: Yes (Life-Threatening, Hospitalization)
  Sender: FDA-Public Use
  Company Number: None

PATIENT
  Age: 95 Year
  Sex: Female
  Weight: 48.9885 kg

DRUGS (1)
  1. MACROBID [Suspect]

REACTIONS (1)
  - ISCHAEMIC STROKE [None]
